FAERS Safety Report 9484902 (Version 2)
Quarter: 2013Q3

REPORT INFORMATION
  Report Type: Spontaneous
  Country: US (occurrence: US)
  Receive Date: 20130828
  Receipt Date: 20130916
  Transmission Date: 20140515
  Serious: No
  Sender: FDA-Public Use
  Company Number: US-009507513-1308USA006180

PATIENT
  Sex: Female

DRUGS (3)
  1. DEXAMETHASONE [Suspect]
     Indication: HELLP SYNDROME
     Dosage: 10 MG, INITIATED ASAP AND GIVEN EVERY 12 HOURS UNTIL DELIVERY IS ACCOMPLISHED AND PATIENT RECOVERED
     Route: 042
  2. DEXAMETHASONE [Suspect]
     Dosage: 5 MG, EVERY 12 HOURS X 2 AND STOPPED
  3. MAGNESIUM SULFATE [Suspect]
     Indication: HELLP SYNDROME
     Dosage: LOADING DOSE AND CONTINUOUS INFUSION DURING ANTEPART, INTRAPART AND AT LEAST THE  24 HRS POSTPARTUM
     Route: 042

REACTIONS (1)
  - Exposure during pregnancy [Unknown]
